FAERS Safety Report 5301098-9 (Version None)
Quarter: 2007Q2

REPORT INFORMATION
  Report Type: 
  Country: None (occurrence: None)
  Receive Date: 20070418
  Receipt Date: 20070411
  Transmission Date: 20071010
  Serious: Yes (Death)
  Sender: FDA-Public Use
  Company Number: AU-ROXANE LABORATORIES, INC-2007-BP-04988RO

PATIENT
  Sex: Male

DRUGS (6)
  1. ALPRAZOLAM [Suspect]
  2. NALTREXONE [Suspect]
  3. NALTREXOL [Suspect]
  4. HEROIN [Suspect]
  5. METHAMPHETAMINE HYDROCHLORIDE [Suspect]
  6. BENZOYLECGONINE [Suspect]

REACTIONS (1)
  - NARCOTIC INTOXICATION [None]
